FAERS Safety Report 14842194 (Version 8)
Quarter: 2018Q4

REPORT INFORMATION
  Report Type: Report from Study
  Country: CN (occurrence: CN)
  Receive Date: 20180503
  Receipt Date: 20181015
  Transmission Date: 20190204
  Serious: Yes (Hospitalization)
  Sender: FDA-Public Use
  Company Number: CN-EISAI MEDICAL RESEARCH-EC-2018-036947

PATIENT
  Age: 55 Year
  Sex: Female
  Weight: 68.5 kg

DRUGS (7)
  1. CAPTOPRIL. [Concomitant]
     Active Substance: CAPTOPRIL
  2. LENVATINIB [Suspect]
     Active Substance: LENVATINIB
     Indication: THYROID CANCER
     Dosage: 24 MG OR PLACEBO
     Route: 048
     Dates: start: 20180104, end: 20180115
  3. LENVATINIB [Suspect]
     Active Substance: LENVATINIB
     Dosage: 24 MG OR PLACEBO
     Route: 048
     Dates: start: 20180117, end: 20180307
  4. LENVATINIB [Suspect]
     Active Substance: LENVATINIB
     Route: 048
     Dates: start: 20180327, end: 20180524
  5. LEVOTHYROXINE SODIUM. [Concomitant]
     Active Substance: LEVOTHYROXINE SODIUM
  6. NIFEDIPINE. [Concomitant]
     Active Substance: NIFEDIPINE
  7. LENVATINIB [Suspect]
     Active Substance: LENVATINIB
     Route: 048
     Dates: start: 20180606

REACTIONS (3)
  - Pneumonia [Recovered/Resolved]
  - Gastrooesophageal reflux disease [Recovered/Resolved]
  - Pleural effusion [Recovered/Resolved]

NARRATIVE: CASE EVENT DATE: 20180303
